FAERS Safety Report 25997971 (Version 2)
Quarter: 2025Q4

REPORT INFORMATION
  Report Type: Spontaneous
  Country: US (occurrence: US)
  Receive Date: 20251105
  Receipt Date: 20251115
  Transmission Date: 20260117
  Serious: Yes (Hospitalization, Other)
  Sender: ABBVIE
  Company Number: US-ABBVIE-6532824

PATIENT
  Sex: Female

DRUGS (48)
  1. VYALEV [Suspect]
     Active Substance: FOSCARBIDOPA\FOSLEVODOPA
     Indication: Parkinson^s disease
     Dosage: FOSCARBIDOPA 12MG/FOSLEVODOPA 240MG/ML INJECT 0.27 ML/HR      CONTINUOUSLY
     Route: 058
  2. ALCOHOL PREP PAD [Concomitant]
     Indication: Product used for unknown indication
     Dosage: TIME INTERVAL: AS NECESSARY: 1 PAD EVERY DAY AS NEEDED
  3. CHLORHEXIDINE GLUCONATE [Concomitant]
     Active Substance: CHLORHEXIDINE GLUCONATE
     Indication: Skin disorder
     Dosage: 4% TOP LIQUID APPLY SMALL AMOUNT TOPICALLY ON WEDNESDAYS WASH AFFECTED AREAS, THEN RINSE
  4. DIMETHICONE [Concomitant]
     Active Substance: DIMETHICONE
     Indication: Skin disorder prophylaxis
     Dosage: CLEANSING CLOTH,ADULT W/DIMETHICONE USE 1 CLOTH EXTERNALLY EVERY DAY AS NEEDED
  5. CLINDAMYCIN PHOSPHATE [Concomitant]
     Active Substance: CLINDAMYCIN PHOSPHATE
     Indication: Skin disorder
     Dosage: 1% TOP SOLN APPLY SMALL AMOUNT TOPICALLY DAILY
  6. CLOBETASOL PROPIONATE [Concomitant]
     Active Substance: CLOBETASOL PROPIONATE
     Indication: Skin disorder
     Dosage: 0.05% TOP SOLN APPLY THIN LAYE TOPICALLY TWICE A DAY
  7. BUPROPION HYDROCHLORIDE [Concomitant]
     Active Substance: BUPROPION HYDROCHLORIDE
     Indication: Mental disorder
     Dosage: 12HR SA TAB TAKE FOUR TABLETS BY MOUTH EVERY DAY
     Route: 048
  8. CALCIUM\VITAMIN D [Concomitant]
     Active Substance: CALCIUM\VITAMIN D
     Indication: Mineral supplementation
     Dosage: CALCIUM 500MG/VITAMIN D 200 UNT TAB TAKE 1 TABLET BY MOUTH TWICE A DAY
     Route: 048
  9. DOCUSATE [Concomitant]
     Active Substance: DOCUSATE
     Indication: Constipation
     Dosage: TAKE ONE CAPSULE BY MOUTH EVERY DAY (STOOL SOFTENER)
     Route: 048
  10. DONEPEZIL HYDROCHLORIDE [Concomitant]
     Active Substance: DONEPEZIL HYDROCHLORIDE
     Indication: Memory impairment
     Dosage: TAKE ONE TABLET BY MOUTH TWICE A DAY
     Route: 048
  11. DULOXETINE HYDROCHLORIDE [Concomitant]
     Active Substance: DULOXETINE HYDROCHLORIDE
     Indication: Mental disorder
     Dosage: TAKE ONE CAPSULE BY MOUTH AT BEDTIME?EC CAP
     Route: 048
  12. FERROUS SULFATE [Concomitant]
     Active Substance: FERROUS SULFATE
     Indication: Mineral supplementation
     Dosage: UD TAKE ONE TABLET BY MOUTH EVERY DAY (IRON)
     Route: 048
  13. FLUOCINONIDE [Concomitant]
     Active Substance: FLUOCINONIDE
     Indication: Skin disorder
     Dosage: 0.05% TOP SOLN APPLY SMALL AMOUNT TOPICALLY TWICE A DAY AS NEEDED  APPLY 1-2 TIMES ON SCALP FOR I...
  14. ASCORBIC ACID [Concomitant]
     Active Substance: ASCORBIC ACID
     Indication: Vitamin supplementation
     Dosage: TAKE ONE-HALF TABLET BY MOUTH EVERY DAY (VITAMIN)
     Route: 048
  15. ASPIRIN [Concomitant]
     Active Substance: ASPIRIN
     Indication: Cardiovascular disorder
     Dosage: ONE TABLET BY MOUTH
     Route: 048
  16. MAGNESIUM CITRATE [Concomitant]
     Active Substance: MAGNESIUM CITRATE
     Indication: Product used for unknown indication
     Dosage: LIQUID,ORAL BY MOUTH
     Route: 048
  17. SENNOSIDES [Concomitant]
     Active Substance: SENNOSIDES
     Indication: Product used for unknown indication
     Dosage: BY MOUTH
  18. GABAPENTIN [Concomitant]
     Active Substance: GABAPENTIN
     Indication: Mental disorder
     Dosage: TAKE ONE CAPSULE BY MOUTH EVERY DAY AND TAKE THREE CAPSULES AT BEDTIME AND TAKE ONE CAPSULE AT BE...
     Route: 048
  19. Amoxicillin/clav [Concomitant]
     Indication: Infection
     Dosage: 875/125MG TAB TAKE 1 TABLET BY MOUTH EVERY 12 HOURS FOR SKIN/TISSUE INFECTION
     Route: 048
     Dates: end: 20250929
  20. CARBIDOPA\LEVODOPA [Concomitant]
     Active Substance: CARBIDOPA\LEVODOPA
     Indication: Parkinson^s disease
     Dosage: CARBIDOPA 23.75MG/LEVODOPA 95MG SA CAP TAKE 1 CAPSULE BY   MOUTH FOUR TIMES A DAY, TAKE AT 8AM, 1...
  21. CARBIDOPA\LEVODOPA [Concomitant]
     Active Substance: CARBIDOPA\LEVODOPA
     Indication: Parkinson^s disease
     Dosage: CARBIDOPA 61.25MG/LEVODOPA 245MG SA CAP TAKE 1 CAPSULE BY   MOUTH FOUR TIMES A DAY, TAKE AT 8AM, ...
  22. HYDROCHLOROTHIAZIDE [Concomitant]
     Active Substance: HYDROCHLOROTHIAZIDE
     Indication: Blood pressure measurement
     Dosage: TAKE ONE TABLET BY MOUTH DAILY
     Route: 048
  23. HYDROCORTISONE [Concomitant]
     Active Substance: HYDROCORTISONE
     Indication: Skin disorder
     Dosage: 2.5% OINT APPLY SMALL AMOUNT TOPICALLY TWICE A DAY APPLY 1-2 TIMES DAILY TO ITCHY BUMPS ON THE SC...
  24. EQV AQUAPHOR [Concomitant]
     Indication: Dry skin
     Dosage: TOP OINT APPLY SMALL AMOUNT TOPICALLY TWICE A DAY
  25. LEVOTHYROXINE SODIUM [Concomitant]
     Active Substance: LEVOTHYROXINE SODIUM
     Indication: Thyroid disorder
     Dosage: 50MCG TAB TAKE ONE TABLET BY MOUTH EVERY MORNING  () TAKE ON AN EMPTY STOMACH 30 MINUTES BEFORE B...
     Route: 048
  26. LITHIUM CARBONATE [Concomitant]
     Active Substance: LITHIUM CARBONATE
     Indication: Mental disorder
     Dosage: TAKE ONE CAPSULE BY MOUTH EVERY DAY
     Route: 048
  27. MEMANTINE [Concomitant]
     Active Substance: MEMANTINE
     Indication: Memory impairment
     Dosage: TAKE ONE TABLET BY MOUTH EVERY DAY AND TAKE ONE TABLET AT BEDTIME
     Route: 048
  28. MIRABEGRON [Concomitant]
     Active Substance: MIRABEGRON
     Indication: Bladder disorder
     Dosage: TAB TAKE ONE TABLET BY MOUTH EVERY DAY
     Route: 048
  29. MIRTAZAPINE [Concomitant]
     Active Substance: MIRTAZAPINE
     Indication: Mental impairment
     Dosage: TAKE FOUR TABLETS BY MOUTH AT BEDTIME
     Route: 048
  30. NALOXONE HCL [Concomitant]
     Active Substance: NALOXONE HYDROCHLORIDE
     Indication: Overdose
     Dosage: 4MG/SPRAY SOLN NASAL SPRAY USE 4MG/1 SPRAY IN ONE NOSTRIL ONCE AS NEEDED  (CALL 911 AND REPEAT DO...
  31. NUTRITION SUPL ENSURE PLUS/VANILLA LIQ [Concomitant]
     Indication: Nutritional supplementation
     Dosage: TAKE 1 CAN (350 CALORIES) BY MOUTH TWICE A DAY
  32. OMEPRAZOLE [Concomitant]
     Active Substance: OMEPRAZOLE
     Indication: Gastrointestinal disorder
     Dosage: TAKE ONE CAPSULE BY MOUTH TWICE A DAY
     Route: 048
  33. HYDROCHLOROTHIAZIDE [Concomitant]
     Active Substance: HYDROCHLOROTHIAZIDE
     Indication: Blood pressure measurement
     Dosage: TAKE ONE TABLET BY MOUTH ON   SUNDAYS, TUESDAYS, THURSDAYS, AND SATURDAYS
     Route: 048
  34. ISTRADEFYLLINE [Concomitant]
     Active Substance: ISTRADEFYLLINE
     Indication: Parkinson^s disease
     Dosage: TAKE ONE TABLET BY MOUTH EVERY MORNING
     Route: 048
  35. LEVOTHYROXINE SODIUM [Concomitant]
     Active Substance: LEVOTHYROXINE SODIUM
     Indication: Product used for unknown indication
     Dosage: 75MCG TAB TAKE ONE TABLET BY MOUTH EVERY MORNING (FOR THYROID) TAKE ON AN EMPTY STOMACH 30 MINUTE...
     Route: 048
  36. LIDOCAINE [Concomitant]
     Active Substance: LIDOCAINE
     Indication: Pain
     Dosage: 5% OINT APPLY SMALL AMOUNT TOPICALLY TWICE A DAY AS NEEDED  TO AFFECTED AREA
  37. LITHIUM CARBONATE [Concomitant]
     Active Substance: LITHIUM CARBONATE
     Indication: Mental disorder
     Dosage: TAKE ONE CAPSULE BY MOUTH EVERY DAY
     Route: 050
  38. MEMANTINE [Concomitant]
     Active Substance: MEMANTINE
     Indication: Memory impairment
     Dosage: TAKE TWO TABLETS BY MOUTH EVERY DAY TAKE ONE TABLET AT BEDTIME
     Route: 048
  39. PRAZOSIN HYDROCHLORIDE [Concomitant]
     Active Substance: PRAZOSIN HYDROCHLORIDE
     Indication: Mental disorder
     Dosage: TAKE ONE CAPSULE BY MOUTH AT BEDTIME
     Route: 048
  40. POLYETHYLENE GLYCOL [Concomitant]
     Active Substance: POLYETHYLENE GLYCOL
     Indication: Constipation
     Dosage: 3350 ORAL PWDR TAKE 17GM BY MOUTH EVERY   ACTIVE DAY  FILL TO WHITE LINE OF BOTTLE TOP (=17GMS) A...
     Route: 048
  41. PRAZOSIN HYDROCHLORIDE [Concomitant]
     Active Substance: PRAZOSIN HYDROCHLORIDE
     Indication: Mental disorder
     Dosage: TAKE ONE CAPSULE BY MOUTH AT BEDTIME *DOSE INCREASE*
     Route: 048
  42. QUETIAPINE FUMARATE [Concomitant]
     Active Substance: QUETIAPINE FUMARATE
     Indication: Mental disorder
     Dosage: TAKE ONE TABLET BY MOUTH AT BEDTIME
     Route: 048
  43. DESIPRAMINE HYDROCHLORIDE [Concomitant]
     Active Substance: DESIPRAMINE HYDROCHLORIDE
     Indication: Mental disorder
     Dosage: TAKE ONE TABLET BY MOUTH AT BEDTIME
     Route: 048
  44. DICLOFENAC SODIUM [Concomitant]
     Active Substance: DICLOFENAC SODIUM
     Indication: Pain
     Dosage: 1% TOP GEL APPLY 2 GRAMS TOPICALLY FOUR TIMES A DAY AS NEEDED  TO AFFECTED AREA  (MAXIMUM TOTAL B...
  45. DULOXETINE HYDROCHLORIDE [Concomitant]
     Active Substance: DULOXETINE HYDROCHLORIDE
     Indication: Mental disorder
     Dosage: CAP TAKE THREE CAPSULES BY MOUTH AT BEDTIME
     Route: 048
  46. ENTACAPONE [Concomitant]
     Active Substance: ENTACAPONE
     Indication: Movement disorder
     Dosage: TAKE ONE TABLET BY MOUTH AT 8AM AND TAKE ONE-HALF TABLET AT 12 NOON AND TAKE ONE TABLET AT 4PM DA...
     Route: 048
  47. CHOLECALCIFEROL [Concomitant]
     Active Substance: CHOLECALCIFEROL
     Indication: Product used for unknown indication
     Dosage: 25MCG (D3-1,000UNIT) TAB 50MCG BY MOUTH EVERY DAY
     Route: 048
  48. COENZYME Q10 [Concomitant]
     Active Substance: DIETARY SUPPLEMENT\UBIDECARENONE
     Indication: Product used for unknown indication
     Dosage: (100MG) CAP/TAB 1 CAPSULE BY MOUTH

REACTIONS (3)
  - Cognitive disorder [Recovering/Resolving]
  - Cerebrovascular accident [Unknown]
  - Gait disturbance [Recovering/Resolving]
